FAERS Safety Report 24780154 (Version 1)
Quarter: 2024Q4

REPORT INFORMATION
  Report Type: Spontaneous
  Country: SG (occurrence: SG)
  Receive Date: 20241227
  Receipt Date: 20241227
  Transmission Date: 20250115
  Serious: Yes (Life-Threatening, Hospitalization, Other)
  Sender: Steriscience PTE
  Company Number: SG-STERISCIENCE B.V.-2024-ST-002166

PATIENT
  Age: 33 Year
  Sex: Female

DRUGS (3)
  1. BUPIVACAINE [Suspect]
     Active Substance: BUPIVACAINE
     Indication: Nerve block
     Dosage: 2.4 MILLILITER
     Route: 065
  2. FENTANYL [Suspect]
     Active Substance: FENTANYL
     Indication: Nerve block
     Dosage: 15 MICROGRAM
     Route: 065
  3. MORPHINE [Suspect]
     Active Substance: MORPHINE
     Indication: Nerve block
     Dosage: 0.1 MILLIGRAM, IN A TOTAL OF 2.8ML
     Route: 065

REACTIONS (4)
  - Oxygen saturation decreased [None]
  - Loss of consciousness [None]
  - Medication error [Unknown]
  - Maternal exposure during delivery [Unknown]
